FAERS Safety Report 8919210 (Version 4)
Quarter: 2013Q2

REPORT INFORMATION
  Report Type: Spontaneous
  Country: JP (occurrence: JP)
  Receive Date: 20121121
  Receipt Date: 20130401
  Transmission Date: 20140414
  Serious: Yes (Life-Threatening, Hospitalization)
  Sender: FDA-Public Use
  Company Number: JP-ELI_LILLY_AND_COMPANY-JP201211003629

PATIENT
  Age: 84 Year
  Sex: Female

DRUGS (11)
  1. FORTEO [Suspect]
     Indication: OSTEOPOROSIS
     Dosage: 20 UG, QD
     Route: 058
     Dates: start: 20120512, end: 20121113
  2. URSO [Concomitant]
     Indication: CHRONIC HEPATITIS C
     Dosage: 100 MG, TID
     Route: 048
     Dates: start: 20080913
  3. CELECOX [Concomitant]
     Indication: PAIN
     Dosage: 100 MG, BID
     Route: 048
     Dates: start: 20120511
  4. GASTER D [Concomitant]
     Dosage: 20 MG, BID
     Route: 048
     Dates: start: 20080913, end: 20121010
  5. EPADEL-S [Concomitant]
     Dosage: 900 MG, BID
     Route: 048
     Dates: start: 20111017
  6. MUCOSTA [Concomitant]
     Dosage: 100 MG, TID
     Route: 048
     Dates: start: 20080913
  7. BUFFERIN [Concomitant]
     Dosage: 81 MG, QD
     Route: 048
     Dates: start: 20080913
  8. MAGMITT [Concomitant]
     Dosage: 660 MG, TID
     Route: 048
     Dates: start: 20111025
  9. PURSENNID [Concomitant]
     Dosage: 24 MG, QD
     Route: 048
     Dates: start: 20120305, end: 20120414
  10. ASPARA-CA [Concomitant]
     Dosage: 200 MG, QD
     Route: 048
     Dates: start: 20120706
  11. ELCATONIN [Concomitant]
     Dosage: 20 IU, QD
     Route: 030
     Dates: start: 20120706

REACTIONS (5)
  - Depressed level of consciousness [Recovered/Resolved]
  - Respiratory arrest [Recovered/Resolved]
  - Dehydration [Recovered/Resolved]
  - Depressed level of consciousness [Recovered/Resolved]
  - Blood alkaline phosphatase increased [Not Recovered/Not Resolved]
